FAERS Safety Report 24351243 (Version 1)
Quarter: 2024Q3

REPORT INFORMATION
  Report Type: Report from Study
  Country: CA (occurrence: CA)
  Receive Date: 20240923
  Receipt Date: 20240923
  Transmission Date: 20241016
  Serious: No
  Sender: ROCHE
  Company Number: CA-ROCHE-3548196

PATIENT
  Age: 59 Year
  Sex: Female

DRUGS (17)
  1. HERCEPTIN [Suspect]
     Active Substance: TRASTUZUMAB
     Indication: Product used for unknown indication
     Route: 065
  2. PERJETA [Suspect]
     Active Substance: PERTUZUMAB
     Indication: HER2 positive breast cancer
     Dosage: DRUG DOSE FIRST ADMINISTERED IS 840 MG MILLIGRAM(S)MOREDOSAGEINFO IS LOADING DOSE
     Route: 042
     Dates: start: 20230427, end: 20230427
  3. PERJETA [Suspect]
     Active Substance: PERTUZUMAB
     Dosage: DRUG DOSE FIRST ADMINISTERED IS 420 MG MILLIGRAM(S)
     Route: 042
     Dates: start: 20230518
  4. EMEND [Concomitant]
     Active Substance: APREPITANT
  5. OZEMPIC [Concomitant]
     Active Substance: SEMAGLUTIDE
  6. PREGABALIN [Concomitant]
     Active Substance: PREGABALIN
     Indication: Pain in extremity
  7. TRAZODONE [Concomitant]
     Active Substance: TRAZODONE HYDROCHLORIDE
  8. ASPIRIN [Concomitant]
     Active Substance: ASPIRIN
  9. CALCIUM [Concomitant]
     Active Substance: CALCIUM
  10. DEXAMETHASONE [Concomitant]
     Active Substance: DEXAMETHASONE
  11. FILGRASTIM [Concomitant]
     Active Substance: FILGRASTIM
  12. ALVESCO [Concomitant]
     Active Substance: CICLESONIDE
  13. LETROZOLE [Concomitant]
     Active Substance: LETROZOLE
  14. ONDANSETRON [Concomitant]
     Active Substance: ONDANSETRON
  15. PROCHLORPERAZINE [Concomitant]
     Active Substance: PROCHLORPERAZINE
  16. ALBUTEROL [Concomitant]
     Active Substance: ALBUTEROL
  17. TAXOL [Concomitant]
     Active Substance: PACLITAXEL

REACTIONS (1)
  - Cellulitis [Unknown]

NARRATIVE: CASE EVENT DATE: 20240325
